FAERS Safety Report 18967337 (Version 6)
Quarter: 2021Q2

REPORT INFORMATION
  Report Type: Spontaneous
  Country: DK (occurrence: DK)
  Receive Date: 20210304
  Receipt Date: 20210610
  Transmission Date: 20210717
  Serious: Yes (Hospitalization)
  Sender: FDA-Public Use
  Company Number: DK-NOVOPROD-784799

PATIENT
  Age: 55 Year
  Sex: Male

DRUGS (10)
  1. THEOPHYLLIN [Concomitant]
     Active Substance: THEOPHYLLINE ANHYDROUS
     Dosage: 200 MG, BID (MORNING + EVENING)
  2. OCTASA [Concomitant]
     Active Substance: MESALAMINE
     Dosage: 2400 MG, BID (MORNING + EVENING)
  3. LANTUS [Concomitant]
     Active Substance: INSULIN GLARGINE
     Dosage: 43 IU, QD
  4. NOVORAPID [Suspect]
     Active Substance: INSULIN ASPART
     Indication: TYPE 1 DIABETES MELLITUS
     Dosage: UNK
     Route: 065
  5. NOVORAPID [Suspect]
     Active Substance: INSULIN ASPART
     Indication: TYPE 1 DIABETES MELLITUS
     Dosage: 30?50 IU QD
     Route: 065
  6. NOVORAPID [Suspect]
     Active Substance: INSULIN ASPART
     Dosage: UNK (GRADUALLY BEEN REDUCED)
     Route: 065
  7. NOVORAPID [Suspect]
     Active Substance: INSULIN ASPART
     Dosage: 80 ? 100 IU
     Route: 065
     Dates: start: 20210107
  8. OMEPRAZOLE [OMEPRAZOLE SODIUM] [Concomitant]
     Active Substance: OMEPRAZOLE SODIUM
     Dosage: 40 MG, QD
  9. MONTELUKAST [Concomitant]
     Active Substance: MONTELUKAST SODIUM
     Dosage: 10 MG, QD
  10. NOVORAPID [Suspect]
     Active Substance: INSULIN ASPART
     Indication: TYPE 1 DIABETES MELLITUS
     Dosage: UNK
     Route: 065

REACTIONS (7)
  - Ageusia [Unknown]
  - Drug ineffective [Unknown]
  - Liquid product physical issue [Unknown]
  - Wrong technique in product usage process [Unknown]
  - Blood glucose increased [Recovering/Resolving]
  - Blood ketone body present [Unknown]
  - Device failure [Unknown]

NARRATIVE: CASE EVENT DATE: 20210107
